FAERS Safety Report 5881541-7 (Version None)
Quarter: 2008Q3

REPORT INFORMATION
  Report Type: 
  Country: None (occurrence: None)
  Receive Date: 20080911
  Receipt Date: 20080826
  Transmission Date: 20090109
  Serious: Yes (Hospitalization, Other)
  Sender: FDA-Public Use
  Company Number: 002#2#2008-00159

PATIENT
  Age: 55 Year
  Sex: Male
  Weight: 74.8435 kg

DRUGS (12)
  1. NEUPRO [Suspect]
     Indication: PARKINSON'S DISEASE
     Dosage: SEE IMAGE
     Route: 062
     Dates: start: 20070901, end: 20071001
  2. NEUPRO [Suspect]
     Indication: PARKINSON'S DISEASE
     Dosage: SEE IMAGE
     Route: 062
     Dates: start: 20071001, end: 20071201
  3. NEUPRO [Suspect]
     Indication: PARKINSON'S DISEASE
     Dosage: SEE IMAGE
     Route: 062
     Dates: start: 20071201, end: 20080301
  4. NEUPRO [Suspect]
     Indication: PARKINSON'S DISEASE
     Dosage: SEE IMAGE
     Route: 062
     Dates: start: 20080201, end: 20080320
  5. NEUPRO [Suspect]
     Indication: PARKINSON'S DISEASE
     Dosage: SEE IMAGE
     Route: 062
     Dates: start: 20080301
  6. ASPIRIN [Concomitant]
  7. LOPRESSOR [Concomitant]
  8. ZOCOR [Concomitant]
  9. PEPCID [Concomitant]
  10. PARCOPA [Concomitant]
  11. STALEVO 100 [Concomitant]
  12. LORAZEPAM [Concomitant]

REACTIONS (4)
  - CORONARY ARTERY OCCLUSION [None]
  - HALLUCINATIONS, MIXED [None]
  - ULCERATIVE KERATITIS [None]
  - WRONG TECHNIQUE IN DRUG USAGE PROCESS [None]
